FAERS Safety Report 17824178 (Version 1)
Quarter: 2020Q2

REPORT INFORMATION
  Report Type: Spontaneous
  Country: US (occurrence: US)
  Receive Date: 20200522
  Receipt Date: 20200522
  Transmission Date: 20200714
  Serious: Yes (Death)
  Sender: FDA-Public Use
  Company Number: None

PATIENT
  Age: 79 Year
  Sex: Female

DRUGS (15)
  1. DIGOXIN. [Concomitant]
     Active Substance: DIGOXIN
  2. ONDANSETRON [Concomitant]
     Active Substance: ONDANSETRON
  3. TRESIBA FLEX [Concomitant]
  4. METOLAZONE. [Concomitant]
     Active Substance: METOLAZONE
  5. SILDENAFIL 20MG TAB [Suspect]
     Active Substance: SILDENAFIL
     Indication: PULMONARY HYPERTENSION
     Route: 048
     Dates: start: 20191225, end: 20200501
  6. CITALOPRAM [Concomitant]
     Active Substance: CITALOPRAM HYDROBROMIDE
  7. PRAVASTATIN. [Concomitant]
     Active Substance: PRAVASTATIN
  8. SPIRONOLACT [Concomitant]
     Active Substance: SPIRONOLACTONE
  9. DILTIAZEM. [Concomitant]
     Active Substance: DILTIAZEM
  10. FUROSEMIDE. [Concomitant]
     Active Substance: FUROSEMIDE
  11. LEVOTHYROXIN [Concomitant]
     Active Substance: LEVOTHYROXINE
  12. CEPHALEXIN. [Concomitant]
     Active Substance: CEPHALEXIN
  13. DILT-XR [Concomitant]
     Active Substance: DILTIAZEM
  14. ADEMLOG [Concomitant]
  15. POT CHLORIDE [Concomitant]
     Active Substance: POTASSIUM CHLORIDE

REACTIONS (1)
  - Death [None]

NARRATIVE: CASE EVENT DATE: 20200501
